FAERS Safety Report 5732140-9 (Version None)
Quarter: 2008Q2

REPORT INFORMATION
  Report Type: 
  Country: None (occurrence: None)
  Receive Date: 20080508
  Receipt Date: 20080429
  Transmission Date: 20081010
  Serious: Yes (Other)
  Sender: FDA-Public Use
  Company Number: US-PFIZER INC-2008037355

PATIENT
  Sex: Male
  Weight: 68 kg

DRUGS (3)
  1. CADUET [Suspect]
     Indication: BLOOD CHOLESTEROL INCREASED
     Dosage: TEXT:10 MG/20 MG
     Route: 048
     Dates: start: 20080418, end: 20080425
  2. CADUET [Suspect]
     Indication: HYPERTENSION
  3. HYDROCODONE BITARTRATE [Concomitant]

REACTIONS (2)
  - HYPOTENSION [None]
  - LOSS OF CONSCIOUSNESS [None]
